FAERS Safety Report 10658657 (Version 1)
Quarter: 2014Q4

REPORT INFORMATION
  Report Type: Spontaneous
  Country: US (occurrence: None)
  Receive Date: 20141216
  Receipt Date: 20141216
  Transmission Date: 20150529
  Serious: No
  Sender: FDA-Public Use
  Company Number: None

PATIENT
  Age: 59 Year
  Sex: Female
  Weight: 51.71 kg

DRUGS (1)
  1. PRIVIGEN [Suspect]
     Active Substance: HUMAN IMMUNOGLOBULIN G
     Indication: IMMUNODEFICIENCY
     Dosage: 70GM, EVERY 3 WEEKS, INTO A VEIN?
     Route: 042
     Dates: start: 20141010, end: 20141212

REACTIONS (16)
  - Drug ineffective [None]
  - Pneumonia chlamydial [None]
  - Pneumonia mycoplasmal [None]
  - Flushing [None]
  - Neck pain [None]
  - Balance disorder [None]
  - Gait disturbance [None]
  - Product substitution issue [None]
  - Impaired work ability [None]
  - Headache [None]
  - Fatigue [None]
  - Photophobia [None]
  - Infusion related reaction [None]
  - Malaise [None]
  - Nausea [None]
  - Muscular weakness [None]

NARRATIVE: CASE EVENT DATE: 20141212
